FAERS Safety Report 16468506 (Version 6)
Quarter: 2019Q4

REPORT INFORMATION
  Report Type: Spontaneous
  Country: JP (occurrence: JP)
  Receive Date: 20190624
  Receipt Date: 20191216
  Transmission Date: 20200122
  Serious: Yes (Death, Life-Threatening, Hospitalization, Other)
  Sender: FDA-Public Use
  Company Number: JP-ELI_LILLY_AND_COMPANY-JP201906005775AA

PATIENT
  Age: 90 Year
  Sex: Female
  Weight: 43 kg

DRUGS (7)
  1. VERZENIO [Suspect]
     Active Substance: ABEMACICLIB
     Dosage: 100 MG, BID
     Route: 048
     Dates: start: 20190529, end: 20190607
  2. KYOBERIN [Concomitant]
     Indication: PROPHYLAXIS
     Dosage: 100 MG
     Route: 048
     Dates: start: 20190515, end: 20190613
  3. BUSCOPAN [Concomitant]
     Active Substance: BUTYLSCOPOLAMINE BROMIDE
     Indication: PROPHYLAXIS
     Dosage: 10 MG
     Route: 048
     Dates: start: 20190515, end: 20190613
  4. VERZENIO [Suspect]
     Active Substance: ABEMACICLIB
     Dosage: 100 UNK
     Route: 048
     Dates: start: 20190608, end: 20190613
  5. VERZENIO [Suspect]
     Active Substance: ABEMACICLIB
     Indication: BREAST CANCER
     Dosage: 150 MG, DAILY
     Route: 048
     Dates: start: 20190515, end: 20190528
  6. FULVESTRANT. [Concomitant]
     Active Substance: FULVESTRANT
     Indication: BREAST CANCER
     Dosage: 250 MG, CYCLICAL
     Route: 030
     Dates: start: 20190515, end: 20190612
  7. LOPERAMIDE HYDROCHLORIDE. [Concomitant]
     Active Substance: LOPERAMIDE HYDROCHLORIDE
     Indication: PROPHYLAXIS
     Dosage: 1 DOSAGE FORM
     Route: 048
     Dates: start: 20190515, end: 20190613

REACTIONS (6)
  - Face oedema [Unknown]
  - Nausea [Unknown]
  - Disseminated intravascular coagulation [Fatal]
  - Catheter site haemorrhage [Unknown]
  - Interstitial lung disease [Fatal]
  - Decreased appetite [Not Recovered/Not Resolved]

NARRATIVE: CASE EVENT DATE: 20190515
